FAERS Safety Report 13238223 (Version 2)
Quarter: 2017Q1

REPORT INFORMATION
  Report Type: Report from Study
  Country: US (occurrence: US)
  Receive Date: 20170216
  Receipt Date: 20170307
  Transmission Date: 20170428
  Serious: No
  Sender: FDA-Public Use
  Company Number: PHEH2017US004616

PATIENT
  Sex: Male
  Weight: 67.4 kg

DRUGS (2)
  1. KEPPRA [Suspect]
     Active Substance: LEVETIRACETAM
     Indication: PRODUCT USED FOR UNKNOWN INDICATION
     Dosage: 1 DF, BID
     Route: 065
  2. TEGRETOL [Suspect]
     Active Substance: CARBAMAZEPINE
     Indication: EPILEPSY
     Dosage: 4 DF, QD (2 IN THE MORNING AND 2 IN THE AFTERNOON), 12 HOURS APART
     Route: 065
     Dates: start: 20170206

REACTIONS (2)
  - Feeling abnormal [Unknown]
  - Dizziness [Unknown]
